FAERS Safety Report 9633457 (Version 1)
Quarter: 2013Q4

REPORT INFORMATION
  Report Type: Spontaneous
  Country: IE (occurrence: IE)
  Receive Date: 20131021
  Receipt Date: 20131021
  Transmission Date: 20140711
  Serious: Yes (Other)
  Sender: FDA-Public Use
  Company Number: IE-AMGEN-IRLSP2013073350

PATIENT
  Age: 41 Year
  Sex: Female

DRUGS (1)
  1. PROLIA [Suspect]
     Indication: PROPHYLAXIS
     Dosage: 60 MG, Q6MO
     Route: 058
     Dates: start: 201303

REACTIONS (4)
  - Impaired healing [Not Recovered/Not Resolved]
  - Wound infection [Not Recovered/Not Resolved]
  - Dental pulp disorder [Unknown]
  - Gingival injury [Not Recovered/Not Resolved]
